FAERS Safety Report 6170364-X (Version None)
Quarter: 2009Q2

REPORT INFORMATION
  Report Type: 
  Country: None (occurrence: None)
  Receive Date: 20090428
  Receipt Date: 20090424
  Transmission Date: 20091009
  Serious: Yes (Life-Threatening, Other)
  Sender: FDA-Public Use
  Company Number: US-MERCK-0904USA01172

PATIENT
  Age: 15 Year
  Sex: Female
  Weight: 50 kg

DRUGS (4)
  1. SINGULAIR [Suspect]
     Indication: BRONCHOSPASM
     Route: 048
     Dates: start: 20081101, end: 20090310
  2. PULMICORT-100 [Concomitant]
     Indication: BRONCHOSPASM
     Route: 065
     Dates: start: 20081117, end: 20090310
  3. XOPENEX [Concomitant]
     Indication: BRONCHOSPASM
     Route: 065
     Dates: start: 20081117, end: 20090310
  4. TUSS DM [Concomitant]
     Indication: COUGH
     Route: 048
     Dates: start: 20080220, end: 20090310

REACTIONS (4)
  - MANIA [None]
  - NERVOUSNESS [None]
  - PARANOIA [None]
  - TREMOR [None]
